FAERS Safety Report 13015750 (Version 1)
Quarter: 2016Q4

REPORT INFORMATION
  Report Type: Spontaneous
  Country: GB (occurrence: None)
  Receive Date: 20161208
  Receipt Date: 20161208
  Transmission Date: 20170207
  Serious: Yes (Hospitalization)
  Sender: FDA-Public Use
  Company Number: GB2016K7976SPO

PATIENT
  Age: 70 Year
  Sex: Male

DRUGS (5)
  1. FUROSEMIDE (FUROSEMIDE) [Suspect]
     Active Substance: FUROSEMIDE
  2. LANSOPRAZOLE GENERIC (LANSOPRAZOLE) UNKNOWN [Suspect]
     Active Substance: LANSOPRAZOLE
     Route: 048
  3. RAMIPRIL WORLD (RAMIPRIL) UNKNOWN [Suspect]
     Active Substance: RAMIPRIL
     Route: 048
     Dates: end: 20161004
  4. WARFARIN (WARFARIN) [Suspect]
     Active Substance: WARFARIN
     Indication: ATRIAL FIBRILLATION
     Dosage: WARFARIN - AS PER INR; ORAL
     Route: 048
     Dates: end: 20161004
  5. EPLERENONE. [Suspect]
     Active Substance: EPLERENONE

REACTIONS (4)
  - International normalised ratio increased [None]
  - Haemorrhage [None]
  - Acute kidney injury [None]
  - Hypoperfusion [None]

NARRATIVE: CASE EVENT DATE: 20161004
